FAERS Safety Report 9392440 (Version 2)
Quarter: 2013Q3

REPORT INFORMATION
  Report Type: Spontaneous
  Country: DE (occurrence: DE)
  Receive Date: 20130710
  Receipt Date: 20130906
  Transmission Date: 20140515
  Serious: Yes (Hospitalization, Other)
  Sender: FDA-Public Use
  Company Number: DE-BIOGENIDEC-2013BI061197

PATIENT
  Age: 23 Year
  Sex: Female

DRUGS (4)
  1. TYSABRI [Suspect]
     Indication: RASMUSSEN ENCEPHALITIS
     Dates: start: 201104
  2. LEVETIRACETAM [Concomitant]
     Indication: RASMUSSEN ENCEPHALITIS
     Dates: start: 201010
  3. PREGABALIN [Concomitant]
     Indication: RASMUSSEN ENCEPHALITIS
     Dates: start: 201010
  4. ZONEGRAN [Concomitant]
     Indication: RASMUSSEN ENCEPHALITIS
     Dates: start: 201011, end: 201111

REACTIONS (4)
  - Status epilepticus [Recovered/Resolved]
  - Convulsion [Recovered/Resolved]
  - Pneumonia [Unknown]
  - Off label use [Not Recovered/Not Resolved]
